FAERS Safety Report 19184875 (Version 2)
Quarter: 2021Q3

REPORT INFORMATION
  Report Type: Report from Study
  Country: GB (occurrence: GB)
  Receive Date: 20210427
  Receipt Date: 20210830
  Transmission Date: 20211014
  Serious: Yes (Other)
  Sender: FDA-Public Use
  Company Number: GB-SAMSUNG BIOEPIS-SB-2021-04214

PATIENT
  Age: 48 Year
  Sex: Male

DRUGS (1)
  1. BENEPALI [Suspect]
     Active Substance: ETANERCEPT
     Indication: AXIAL SPONDYLOARTHRITIS
     Route: 058
     Dates: start: 20201126

REACTIONS (7)
  - Influenza [Unknown]
  - Suspected COVID-19 [Unknown]
  - Hypersensitivity [Not Recovered/Not Resolved]
  - Treatment noncompliance [Unknown]
  - Oropharyngeal pain [Unknown]
  - Skin infection [Unknown]
  - Rash [Not Recovered/Not Resolved]
